FAERS Safety Report 6367341-2 (Version None)
Quarter: 2009Q3

REPORT INFORMATION
  Report Type: 
  Country: None (occurrence: None)
  Receive Date: 20090915
  Receipt Date: 20090915
  Transmission Date: 20100115
  Serious: Yes (Death, Hospitalization)
  Sender: FDA-Public Use
  Company Number: AMI0005338

PATIENT
  Age: 58 Year
  Sex: Male

DRUGS (2)
  1. MEPHYTON [Suspect]
     Indication: HAEMOLYSIS
  2. AGGRESSIVE TRANSFUSIONE AS DESCRIBED IN THE CASE SUMMARY [Concomitant]

REACTIONS (4)
  - CHILLS [None]
  - JAUNDICE [None]
  - NEUTROPENIA [None]
  - PLATELET COUNT INCREASED [None]
